FAERS Safety Report 7369358-8 (Version None)
Quarter: 2011Q1

REPORT INFORMATION
  Report Type: 
  Country: None (occurrence: None)
  Receive Date: 20110323
  Receipt Date: 20110318
  Transmission Date: 20110831
  Serious: Yes (Death, Other)
  Sender: FDA-Public Use
  Company Number: FR-ROCHE-766526

PATIENT
  Sex: Female

DRUGS (3)
  1. BEVACIZUMAB [Suspect]
     Indication: NON-SMALL CELL LUNG CANCER
     Dosage: FOUR COURSE RECEIVED.
     Route: 065
     Dates: start: 20101118
  2. CISPLATIN [Suspect]
     Indication: NON-SMALL CELL LUNG CANCER
     Dosage: FOUR COURSE RECEIVED.
     Route: 065
     Dates: start: 20101118
  3. PACLITAXEL [Suspect]
     Indication: NON-SMALL CELL LUNG CANCER
     Dosage: FOUR COURSES RECEIVED.
     Route: 065
     Dates: start: 20101118

REACTIONS (3)
  - PHLEBITIS [None]
  - LYMPHANGITIS [None]
  - PULMONARY EMBOLISM [None]
